FAERS Safety Report 15668976 (Version 3)
Quarter: 2019Q1

REPORT INFORMATION
  Report Type: Report from Study
  Country: None (occurrence: CO)
  Receive Date: 20181129
  Receipt Date: 20190214
  Transmission Date: 20190417
  Serious: Yes (Other)
  Sender: FDA-Public Use
  Company Number: CO-ABBVIE-18K-036-2571969-00

PATIENT
  Age: 57 Year
  Sex: Female
  Weight: 72 kg

DRUGS (1)
  1. HUMIRA [Suspect]
     Active Substance: ADALIMUMAB
     Indication: RHEUMATOID ARTHRITIS
     Route: 058
     Dates: start: 20121016, end: 20190114

REACTIONS (4)
  - Osteoarthritis [Not Recovered/Not Resolved]
  - Grip strength decreased [Unknown]
  - Treatment failure [Unknown]
  - Fall [Unknown]

NARRATIVE: CASE EVENT DATE: 20140916
